FAERS Safety Report 8117804-4 (Version None)
Quarter: 2012Q1

REPORT INFORMATION
  Report Type: 
  Country: None (occurrence: None)
  Receive Date: 20120131
  Receipt Date: 20100615
  Transmission Date: 20120608
  Serious: Yes (Other)
  Sender: FDA-Public Use
  Company Number: 2010003224

PATIENT
  Age: 89 Year
  Sex: Male

DRUGS (8)
  1. INSULIN GLARGINE (INSULIN GLARGINE) [Concomitant]
  2. ERYMAX [Suspect]
     Indication: SKIN INFECTION
     Dosage: 2000 MG (500 MG,4 IN 1 D) ORAL
     Route: 048
     Dates: start: 20100525, end: 20100601
  3. HALOPERIDOL [Concomitant]
  4. FERROUS SULFATE TAB [Concomitant]
  5. LANSOPRAZOLE [Concomitant]
  6. ENALAPRIL MALEATE [Concomitant]
  7. FUROSEMIDE [Concomitant]
  8. SIMVASTATIN [Concomitant]

REACTIONS (1)
  - NEUTROPENIA [None]
